FAERS Safety Report 6771539-9 (Version None)
Quarter: 2010Q2

REPORT INFORMATION
  Report Type: 
  Country: None (occurrence: None)
  Receive Date: 20100611
  Receipt Date: 20100526
  Transmission Date: 20101027
  Serious: Yes (Hospitalization)
  Sender: FDA-Public Use
  Company Number: APP201000514

PATIENT
  Age: 8 Month
  Sex: Female

DRUGS (6)
  1. METHYLPREDNISOLONE SODIUM SUCCINATE [Suspect]
     Indication: ANAEMIA HAEMOLYTIC AUTOIMMUNE
     Dosage: 2 MG/KG, 1 IN 1 D, INTRAVENOUS, 40 MG/KG, 1 IN 1 D
     Route: 042
  2. METHYLPREDNISOLONE SODIUM SUCCINATE [Suspect]
     Indication: ANAEMIA HAEMOLYTIC AUTOIMMUNE
     Dosage: 2 MG/KG, 1 IN 1 D, INTRAVENOUS, 40 MG/KG, 1 IN 1 D
     Route: 042
  3. RITUXIMAB (RITUXIMAB) [Suspect]
     Indication: ANAEMIA HAEMOLYTIC AUTOIMMUNE
     Dosage: 375 MG/M2, 1 IN 1 WK
  4. IMMUNOGLOBULIN PREPARATIONS [Suspect]
     Indication: ANAEMIA HAEMOLYTIC AUTOIMMUNE
     Dosage: 400 MG/KG, 1 IN 3 WK
  5. CYCLOPHOSPHAMIDE [Suspect]
     Indication: ANAEMIA HAEMOLYTIC AUTOIMMUNE
     Dosage: 10 MG/KG, 1 IN 1 D
  6. PREDNISONE TAB [Suspect]
     Indication: ANAEMIA HAEMOLYTIC AUTOIMMUNE
     Dosage: 2 MG/KG, 1 IN 1 D, ORAL
     Route: 048

REACTIONS (14)
  - ABDOMINAL PAIN [None]
  - ACUTE RESPIRATORY DISTRESS SYNDROME [None]
  - ANAEMIA HAEMOLYTIC AUTOIMMUNE [None]
  - CONDITION AGGRAVATED [None]
  - DILATATION VENTRICULAR [None]
  - DRUG DEPENDENCE [None]
  - DRUG RESISTANCE [None]
  - IMMUNOGLOBULINS DECREASED [None]
  - LUNG INFECTION PSEUDOMONAL [None]
  - PNEUMOMEDIASTINUM [None]
  - PULMONARY EMBOLISM [None]
  - PULMONARY HYPERTENSION [None]
  - THROMBOSIS IN DEVICE [None]
  - VENTRICULAR DYSKINESIA [None]
